FAERS Safety Report 13418220 (Version 1)
Quarter: 2017Q2

REPORT INFORMATION
  Report Type: Spontaneous
  Country: US (occurrence: US)
  Receive Date: 20170407
  Receipt Date: 20170407
  Transmission Date: 20170830
  Serious: No
  Sender: FDA-Public Use
  Company Number: US-PRINSTON PHARMACEUTICAL INC.-2016PRN00255

PATIENT
  Sex: Female
  Weight: 99.77 kg

DRUGS (11)
  1. DORZOLAMIDE EYE DROPS [Concomitant]
     Active Substance: DORZOLAMIDE
     Dosage: 1 GTT, 2X/DAY
     Dates: start: 2013
  2. VITAMIN E [Concomitant]
     Active Substance: .ALPHA.-TOCOPHEROL
     Dosage: 1 TABLETS, 1X/DAY
     Dates: start: 2015
  3. IRON PILL [Concomitant]
     Active Substance: IRON
     Dosage: 1 TABLETS, 1X/DAY
     Dates: start: 2012
  4. SIMVASTATIN. [Concomitant]
     Active Substance: SIMVASTATIN
     Dosage: 40 MG, 1X/DAY
  5. BABY ASPIRIN [Concomitant]
     Active Substance: ASPIRIN
     Dosage: 81 MG, 1X/DAY
     Dates: start: 2011
  6. BENAZEPRIL HYDROCHLORIDE. [Suspect]
     Active Substance: BENAZEPRIL HYDROCHLORIDE
     Indication: HYPERTENSION
     Dosage: 40 MG, 1X/DAY
     Route: 048
     Dates: end: 201608
  7. BENAZEPRIL HYDROCHLORIDE. [Suspect]
     Active Substance: BENAZEPRIL HYDROCHLORIDE
     Dosage: 40 MG, UNK
     Route: 048
     Dates: start: 201608
  8. MULTIVITAMIN [Concomitant]
     Active Substance: VITAMINS
     Dosage: 1 TABLETS, 1X/DAY
     Dates: start: 2015
  9. NOVOLOG [Concomitant]
     Active Substance: INSULIN ASPART
     Dosage: UNK
     Dates: start: 2001
  10. LEVANAC EYE DROPS [Concomitant]
     Dosage: 1 GTT, 2X/DAY
     Route: 047
     Dates: start: 2001
  11. PREDNISOLONE EYE DROPS [Concomitant]
     Dosage: 1 GTT, 1X/DAY
     Dates: start: 2013

REACTIONS (3)
  - Cough [Not Recovered/Not Resolved]
  - Sinusitis [Unknown]
  - Glycosylated haemoglobin increased [Unknown]

NARRATIVE: CASE EVENT DATE: 2015
